FAERS Safety Report 5740429-2 (Version None)
Quarter: 2008Q2

REPORT INFORMATION
  Report Type: 
  Country: None (occurrence: None)
  Receive Date: 20080516
  Receipt Date: 20080516
  Transmission Date: 20081010
  Serious: Yes (Other)
  Sender: FDA-Public Use
  Company Number: A0728225A

PATIENT
  Age: 37 Year
  Sex: Female
  Weight: 67.7 kg

DRUGS (3)
  1. ALLI [Suspect]
     Route: 048
     Dates: start: 20080505
  2. DICLOFENAC [Concomitant]
     Dates: start: 20080425
  3. MULTI-VITAMIN [Concomitant]

REACTIONS (4)
  - ANAL HAEMORRHAGE [None]
  - HAEMATOCHEZIA [None]
  - MICTURITION URGENCY [None]
  - THERAPEUTIC RESPONSE UNEXPECTED [None]
